FAERS Safety Report 4846485-8 (Version None)
Quarter: 2005Q4

REPORT INFORMATION
  Report Type: 
  Country: None (occurrence: None)
  Receive Date: 20051202
  Receipt Date: 20051122
  Transmission Date: 20060501
  Serious: Yes (Hospitalization)
  Sender: FDA-Public Use
  Company Number: 219735

PATIENT
  Age: 68 Year
  Sex: Male
  Weight: 65.8 kg

DRUGS (2)
  1. AVASTIN [Suspect]
     Indication: COLORECTAL CANCER METASTATIC
     Dosage: 5 MG/KG, Q2W, INTRAVENOUS
     Route: 042
     Dates: start: 20041116
  2. ANTIDIABETIC DRUG NOS (ANTIDIABETIC DRUG NOS) [Concomitant]

REACTIONS (2)
  - POST PROCEDURAL COMPLICATION [None]
  - WOUND INFECTION [None]
